FAERS Safety Report 6005335-7 (Version None)
Quarter: 2008Q4

REPORT INFORMATION
  Report Type: 
  Country: None (occurrence: None)
  Receive Date: 20081215
  Receipt Date: 20081128
  Transmission Date: 20090506
  Serious: Yes (Life-Threatening, Hospitalization, Other)
  Sender: FDA-Public Use
  Company Number: DSA_62312_2008

PATIENT
  Sex: Female

DRUGS (15)
  1. MIGRANAL [Suspect]
     Indication: DRUG USE FOR UNKNOWN INDICATION
     Dosage: (DF NASAL)
     Route: 045
  2. CARBAMAZEPINE [Concomitant]
  3. TOPAMAX [Concomitant]
  4. CIPRO [Concomitant]
  5. ACETAMINOPHEN [Concomitant]
  6. SEROQUEL [Concomitant]
  7. RANITIDINE [Concomitant]
  8. PROTONIX [Concomitant]
  9. LEVOTHYROXINE [Concomitant]
  10. SINGULAIR [Concomitant]
  11. SERTRALINE [Concomitant]
  12. AMAZACORT [Concomitant]
  13. E VITAMIN [Concomitant]
  14. PAPAYA ENZYMES [Concomitant]
  15. NASACORT [Concomitant]

REACTIONS (5)
  - ACCIDENTAL EXPOSURE [None]
  - CHEST DISCOMFORT [None]
  - CHEST PAIN [None]
  - LATEX ALLERGY [None]
  - PHARYNGEAL OEDEMA [None]
